FAERS Safety Report 5247161-2 (Version None)
Quarter: 2007Q1

REPORT INFORMATION
  Report Type: 
  Country: None (occurrence: None)
  Receive Date: 20070221
  Receipt Date: 20070108
  Transmission Date: 20070707
  Serious: Yes (Hospitalization)
  Sender: FDA-Public Use
  Company Number: 2007SP000387

PATIENT
  Age: 65 Year
  Sex: Female

DRUGS (2)
  1. PEG-INTRON [Suspect]
     Indication: HEPATITIS C
     Dosage: SC
     Route: 058
     Dates: start: 20061027, end: 20070103
  2. RIBAVIRIN [Suspect]
     Indication: HEPATITIS C
     Dosage: PO
     Route: 048
     Dates: start: 20061027, end: 20070103

REACTIONS (12)
  - ABASIA [None]
  - ABDOMINAL PAIN UPPER [None]
  - ANAEMIA [None]
  - ANOSMIA [None]
  - BONE PAIN [None]
  - DEHYDRATION [None]
  - DIARRHOEA [None]
  - ORAL INTAKE REDUCED [None]
  - ORAL MUCOSAL DISORDER [None]
  - THINKING ABNORMAL [None]
  - VOMITING [None]
  - WHITE BLOOD CELL COUNT DECREASED [None]
